FAERS Safety Report 6156358-9 (Version None)
Quarter: 2009Q2

REPORT INFORMATION
  Report Type: 
  Country: None (occurrence: None)
  Receive Date: 20090415
  Receipt Date: 20090403
  Transmission Date: 20091009
  Serious: Yes (Hospitalization)
  Sender: FDA-Public Use
  Company Number: IT-GILEAD-2009-0020767

PATIENT
  Sex: Male

DRUGS (3)
  1. ATRIPLA [Suspect]
     Indication: HIV INFECTION
     Route: 048
     Dates: start: 20090120, end: 20090305
  2. TRUVADA [Concomitant]
     Indication: HIV INFECTION
     Dates: start: 20030101
  3. SUSTIVA [Concomitant]
     Indication: HIV INFECTION
     Dates: start: 20030101

REACTIONS (1)
  - TRIGEMINAL NEURALGIA [None]
